FAERS Safety Report 10610456 (Version 2)
Quarter: 2014Q4

REPORT INFORMATION
  Report Type: Spontaneous
  Country: CA (occurrence: None)
  Receive Date: 20141124
  Receipt Date: 20141210
  Transmission Date: 20150529
  Serious: Yes (Other)
  Sender: FDA-Public Use
  Company Number: CA-017783

PATIENT
  Age: 64 Year
  Sex: Male

DRUGS (12)
  1. OXYCET [Concomitant]
     Active Substance: ACETAMINOPHEN\OXYCODONE HYDROCHLORIDE
  2. DIGOXIN. [Concomitant]
     Active Substance: DIGOXIN
  3. FIRMAGON [Suspect]
     Active Substance: DEGARELIX ACETATE
     Indication: PROSTATE CANCER
     Route: 058
     Dates: start: 20141110, end: 20141110
  4. BISOPROLOL COR SANDOZ [Concomitant]
  5. ADDITIVA VIT C [Concomitant]
  6. ASA [Concomitant]
     Active Substance: ASPIRIN
  7. MORPHINE [Concomitant]
     Active Substance: MORPHINE
  8. VITAMIN D [Concomitant]
     Active Substance: CHOLECALCIFEROL
  9. OMEGA 3 FISH OILS [Concomitant]
  10. RAMIPRIL. [Concomitant]
     Active Substance: RAMIPRIL
  11. CRESTOR [Concomitant]
     Active Substance: ROSUVASTATIN CALCIUM
  12. BICALUTAMIDE. [Concomitant]
     Active Substance: BICALUTAMIDE

REACTIONS (1)
  - Lymphoma [None]

NARRATIVE: CASE EVENT DATE: 20141110
